FAERS Safety Report 24381657 (Version 1)
Quarter: 2024Q4

REPORT INFORMATION
  Report Type: Spontaneous
  Country: TR (occurrence: TR)
  Receive Date: 20241001
  Receipt Date: 20241001
  Transmission Date: 20250115
  Serious: Yes (Other)
  Sender: NOVO NORDISK
  Company Number: TR-NOVOPROD-1290902

PATIENT
  Sex: Female

DRUGS (11)
  1. RYZODEG 70/30 [Suspect]
     Active Substance: INSULIN ASPART\INSULIN DEGLUDEC
     Indication: Diabetes mellitus
     Dosage: UNK
  2. CARDURA [Concomitant]
     Active Substance: DOXAZOSIN MESYLATE
     Dosage: 8 MG, QD
  3. IRDA [Concomitant]
     Dosage: UNK QD 1X1
  4. ESCITALOPRAM OXALATE [Concomitant]
     Active Substance: ESCITALOPRAM OXALATE
     Dosage: 50 MG, QD
  5. GINGUS INTENS [Concomitant]
     Dosage: UNK QD 1X1
  6. DEMENTA [Concomitant]
     Dosage: 5 MG, QD
  7. ANTI-ASIDOZ [Concomitant]
     Dosage: 500 MG, QD
  8. QALYVIZ [Concomitant]
     Dosage: 0.25 , QD
  9. TRIBEXOL [Concomitant]
     Dosage: UNK 1X1
  10. ASPIRIN [Concomitant]
     Active Substance: ASPIRIN
     Dosage: 81 MG, QD
  11. PROLIA [Concomitant]
     Active Substance: DENOSUMAB
     Dosage: 60 MG/ML ONCE A SIX MONTH

REACTIONS (1)
  - Dementia [Unknown]
